FAERS Safety Report 4439013-2 (Version None)
Quarter: 2004Q3

REPORT INFORMATION
  Report Type: 
  Country: None (occurrence: None)
  Receive Date: 20040901
  Receipt Date: 20040518
  Transmission Date: 20050211
  Serious: Yes (Hospitalization)
  Sender: FDA-Public Use
  Company Number: US-MERCK-0405USA01364

PATIENT
  Age: 88 Year
  Sex: Male

DRUGS (5)
  1. PLAVIX [Concomitant]
     Route: 065
  2. LANOXIN [Concomitant]
     Route: 065
  3. LASIX [Concomitant]
     Route: 065
  4. COZAAR [Suspect]
     Indication: HYPERTENSION
     Route: 048
     Dates: end: 20030808
  5. ZOCOR [Concomitant]
     Route: 048

REACTIONS (10)
  - ATRIAL FIBRILLATION [None]
  - BLADDER DISORDER [None]
  - CARDIAC FAILURE CONGESTIVE [None]
  - ESCHERICHIA BACTERAEMIA [None]
  - HYPERKALAEMIA [None]
  - HYPOTENSION [None]
  - MYOCARDIAL INFARCTION [None]
  - RENAL DISORDER [None]
  - SICK SINUS SYNDROME [None]
  - UROSEPSIS [None]
